FAERS Safety Report 4630125-7 (Version None)
Quarter: 2005Q2

REPORT INFORMATION
  Report Type: 
  Country: None (occurrence: None)
  Receive Date: 20050408
  Receipt Date: 20050325
  Transmission Date: 20051028
  Serious: Yes (Hospitalization)
  Sender: FDA-Public Use
  Company Number: FR-GLAXOSMITHKLINE-B0376072A

PATIENT
  Age: 21 Year
  Sex: Male
  Weight: 100 kg

DRUGS (3)
  1. LAMICTAL [Suspect]
     Indication: EPILEPSY
     Route: 048
     Dates: start: 20041115, end: 20050214
  2. EPITOMAX [Concomitant]
     Route: 048
     Dates: start: 20041115
  3. KEPPRA [Concomitant]
     Route: 048
     Dates: start: 20041115

REACTIONS (5)
  - CONVULSION [None]
  - HEPATITIS FULMINANT [None]
  - RENAL FAILURE [None]
  - RENAL TUBULAR NECROSIS [None]
  - RHABDOMYOLYSIS [None]
